FAERS Safety Report 18794305 (Version 1)
Quarter: 2021Q1

REPORT INFORMATION
  Report Type: Spontaneous
  Country: US (occurrence: US)
  Receive Date: 20210127
  Receipt Date: 20210127
  Transmission Date: 20210419
  Serious: Yes (Other)
  Sender: FDA-Public Use
  Company Number: None

PATIENT
  Age: 49 Year
  Sex: Female
  Weight: 65.77 kg

DRUGS (5)
  1. TECFIDERA [Concomitant]
     Active Substance: DIMETHYL FUMARATE
  2. EXCEDRIN MIGRAINE [Concomitant]
     Active Substance: ACETAMINOPHEN\ASPIRIN\CAFFEINE
  3. TOLTERODINE ER 2MG [Concomitant]
  4. DIMETHYL FUMARATE [Suspect]
     Active Substance: DIMETHYL FUMARATE
     Indication: MULTIPLE SCLEROSIS
     Route: 048
     Dates: start: 20201101
  5. ASPIRIN 81MG [Concomitant]
     Active Substance: ASPIRIN

REACTIONS (3)
  - Urticaria [None]
  - Rash [None]
  - Product substitution issue [None]

NARRATIVE: CASE EVENT DATE: 20210127
